FAERS Safety Report 7342523-1 (Version None)
Quarter: 2011Q1

REPORT INFORMATION
  Report Type: 
  Country: None (occurrence: None)
  Receive Date: 20110303
  Receipt Date: 20110218
  Transmission Date: 20110831
  Serious: Yes (Other)
  Sender: FDA-Public Use
  Company Number: TPA2011A00736

PATIENT
  Age: 54 Year
  Sex: Female

DRUGS (1)
  1. DEXILANT [Suspect]
     Indication: GASTROOESOPHAGEAL REFLUX DISEASE
     Dosage: 60 MG, 1 IN 1 D, PER ORAL
     Route: 048
     Dates: start: 20110204, end: 20110218

REACTIONS (2)
  - ANXIETY [None]
  - SUICIDAL IDEATION [None]
